FAERS Safety Report 13407517 (Version 1)
Quarter: 2017Q2

REPORT INFORMATION
  Report Type: Spontaneous
  Country: US (occurrence: US)
  Receive Date: 20170405
  Receipt Date: 20170405
  Transmission Date: 20170830
  Serious: No
  Sender: FDA-Public Use
  Company Number: US-ASTRAZENECA-2017SE32277

PATIENT
  Age: 19 Year
  Sex: Female
  Weight: 65.8 kg

DRUGS (2)
  1. SYMBICORT [Suspect]
     Active Substance: BUDESONIDE\FORMOTEROL FUMARATE DIHYDRATE
     Indication: UPPER RESPIRATORY TRACT INFECTION
     Dosage: ONE DOSE OF SYMBICORT EVENING OF 01-MAR-2017 AND ONE DOSE THE MORNING OF 02-MAR-2017
     Route: 055
     Dates: start: 20170301
  2. SYMBICORT [Suspect]
     Active Substance: BUDESONIDE\FORMOTEROL FUMARATE DIHYDRATE
     Indication: UPPER RESPIRATORY TRACT INFECTION
     Dosage: 80/4.5 MCG, ONE PUFF TWICE DAILY
     Route: 055
     Dates: start: 20170301

REACTIONS (5)
  - Rash [Recovered/Resolved]
  - Swelling face [Recovered/Resolved]
  - Off label use [Unknown]
  - Product use in unapproved indication [Unknown]
  - Headache [Unknown]
